FAERS Safety Report 14402149 (Version 1)
Quarter: 2018Q1

REPORT INFORMATION
  Report Type: Spontaneous
  Country: BR (occurrence: BR)
  Receive Date: 20180117
  Receipt Date: 20180117
  Transmission Date: 20180509
  Serious: Yes (Other)
  Sender: FDA-Public Use
  Company Number: BR-PFIZER INC-2017438524

PATIENT
  Age: 59 Year
  Sex: Male

DRUGS (5)
  1. LYRICA [Suspect]
     Active Substance: PREGABALIN
     Indication: DIABETIC NEUROPATHY
     Dosage: 150 MG, 2X/DAY
  2. METFORMIN [Concomitant]
     Active Substance: METFORMIN HYDROCHLORIDE
     Dosage: UNK, AT NIGHT
     Dates: start: 1997
  3. LYRICA [Suspect]
     Active Substance: PREGABALIN
     Indication: NEURALGIA
  4. LANTUS [Concomitant]
     Active Substance: INSULIN GLARGINE
     Dosage: UNK, DAILY (EVERY NIGHT)
     Dates: start: 2007
  5. GLIMEPIRIDE. [Concomitant]
     Active Substance: GLIMEPIRIDE
     Dosage: UNK, AT LUNCH
     Dates: start: 1997

REACTIONS (6)
  - Musculoskeletal chest pain [Unknown]
  - Labyrinthitis [Not Recovered/Not Resolved]
  - Diverticulitis [Unknown]
  - Condition aggravated [Unknown]
  - Tinnitus [Not Recovered/Not Resolved]
  - Gastrointestinal disorder [Unknown]
